FAERS Safety Report 4560223-8 (Version None)
Quarter: 2005Q1

REPORT INFORMATION
  Report Type: 
  Country: None (occurrence: None)
  Receive Date: 20050125
  Receipt Date: 20041109
  Transmission Date: 20050727
  Serious: Yes (Other)
  Sender: FDA-Public Use
  Company Number: 200412554DE

PATIENT
  Age: 88 Day
  Sex: Female
  Weight: 6 kg

DRUGS (1)
  1. ARAVA [Suspect]
     Indication: POLYARTHRITIS
     Route: 064
     Dates: start: 20030101, end: 20040723

REACTIONS (3)
  - APNOEA [None]
  - HEPATITIS TOXIC [None]
  - MATERNAL DRUGS AFFECTING FOETUS [None]
